FAERS Safety Report 6713595-X (Version None)
Quarter: 2010Q2

REPORT INFORMATION
  Report Type: 
  Country: None (occurrence: None)
  Receive Date: 20100506
  Receipt Date: 20100428
  Transmission Date: 20101027
  Serious: Yes (Hospitalization)
  Sender: FDA-Public Use
  Company Number: US-JNJFOC-20100303379

PATIENT
  Sex: Female
  Weight: 71.67 kg

DRUGS (5)
  1. DURAGESIC-100 [Suspect]
     Indication: PAIN
     Dosage: 100+50
     Route: 062
  2. DURAGESIC-100 [Suspect]
     Dosage: NDC 5045809205
     Route: 062
  3. DURAGESIC-100 [Suspect]
     Dosage: 50+100UG/ HR
     Route: 062
  4. MORPHINE [Concomitant]
     Indication: PAIN
     Dosage: 0.5CC
     Route: 048
  5. DEMEROL [Concomitant]
     Indication: PAIN
     Route: 048

REACTIONS (8)
  - DRUG INEFFECTIVE [None]
  - DYSKINESIA [None]
  - INCORRECT DRUG ADMINISTRATION DURATION [None]
  - MUSCLE SPASMS [None]
  - PAIN [None]
  - RESTLESS LEGS SYNDROME [None]
  - SPINAL COMPRESSION FRACTURE [None]
  - WRONG TECHNIQUE IN DRUG USAGE PROCESS [None]
